FAERS Safety Report 5021735-6 (Version None)
Quarter: 2006Q2

REPORT INFORMATION
  Report Type: 
  Country: None (occurrence: None)
  Receive Date: 20060605
  Receipt Date: 20060524
  Transmission Date: 20061013
  Serious: Yes (Hospitalization)
  Sender: FDA-Public Use
  Company Number: 225564

PATIENT
  Sex: Female

DRUGS (1)
  1. AVASTIN [Suspect]
     Indication: METASTATIC NEOPLASM

REACTIONS (2)
  - GLOMERULONEPHRITIS PROLIFERATIVE [None]
  - RENAL FAILURE ACUTE [None]
